FAERS Safety Report 17381206 (Version 1)
Quarter: 2020Q1

REPORT INFORMATION
  Report Type: Spontaneous
  Country: US (occurrence: US)
  Receive Date: 20200206
  Receipt Date: 20200206
  Transmission Date: 20200409
  Serious: Yes (Death, Life-Threatening, Hospitalization)
  Sender: FDA-Public Use
  Company Number: None

PATIENT
  Age: 80 Year
  Sex: Female
  Weight: 61.65 kg

DRUGS (5)
  1. 5-FU OR FLUOROURACIL [Suspect]
     Active Substance: FLUOROURACIL
     Indication: COLON CANCER
     Route: 042
     Dates: start: 20191204, end: 20191206
  2. LOSARTAN. [Concomitant]
     Active Substance: LOSARTAN
  3. ATENOLOL. [Concomitant]
     Active Substance: ATENOLOL
  4. SIMVASTATIN. [Concomitant]
     Active Substance: SIMVASTATIN
  5. PANTOPRAZOLE [Concomitant]
     Active Substance: PANTOPRAZOLE

REACTIONS (6)
  - Feeding disorder [None]
  - Dihydropyrimidine dehydrogenase deficiency [None]
  - Diarrhoea [None]
  - Pyrexia [None]
  - Mucosal inflammation [None]
  - Lip swelling [None]

NARRATIVE: CASE EVENT DATE: 20191204
